FAERS Safety Report 15619644 (Version 2)
Quarter: 2018Q4

REPORT INFORMATION
  Report Type: Report from Study
  Country: KR (occurrence: KR)
  Receive Date: 20181115
  Receipt Date: 20181119
  Transmission Date: 20190205
  Serious: No
  Sender: FDA-Public Use
  Company Number: KR-B.I. PHARMACEUTICALS,INC./RIDGEFIELD-2018-BI-054758

PATIENT
  Age: 81 Year
  Sex: Male

DRUGS (4)
  1. HEBRON-F [Concomitant]
     Indication: CHRONIC OBSTRUCTIVE PULMONARY DISEASE
     Route: 048
     Dates: start: 20170306
  2. VAHELVA [Suspect]
     Active Substance: OLODATEROL\TIOTROPIUM
     Indication: CHRONIC OBSTRUCTIVE PULMONARY DISEASE
     Dosage: TIOTROPIUM BROMIDE+OLODATEROL FDC (SPIOLTO) 5MCG+5MCG (STRENGTH: 2.5MCG +2.5MCG X 2 PUFFS ONCE DAILY
     Route: 050
     Dates: start: 20170605, end: 20171226
  3. CODAEWON FORTE [Concomitant]
     Indication: CHRONIC OBSTRUCTIVE PULMONARY DISEASE
     Dosage: PACK
     Route: 048
     Dates: start: 20170605
  4. ERDOS [Concomitant]
     Active Substance: ERDOSTEINE
     Indication: CHRONIC OBSTRUCTIVE PULMONARY DISEASE
     Route: 048
     Dates: start: 20170306

REACTIONS (1)
  - Renal injury [Recovered/Resolved]

NARRATIVE: CASE EVENT DATE: 20170605
